FAERS Safety Report 16158548 (Version 2)
Quarter: 2019Q2

REPORT INFORMATION
  Report Type: Spontaneous
  Country: US (occurrence: US)
  Receive Date: 20190404
  Receipt Date: 20190430
  Transmission Date: 20190711
  Serious: No
  Sender: FDA-Public Use
  Company Number: PHEH2019US014813

PATIENT
  Sex: Female

DRUGS (1)
  1. ZOFRAN ODT [Suspect]
     Active Substance: ONDANSETRON HYDROCHLORIDE
     Indication: MORNING SICKNESS
     Route: 048

REACTIONS (6)
  - Emotional distress [Unknown]
  - Maternal exposure during pregnancy [Unknown]
  - Pain [Unknown]
  - Anxiety [Unknown]
  - Product use in unapproved indication [Unknown]
  - Anhedonia [Unknown]
